FAERS Safety Report 13364175 (Version 1)
Quarter: 2017Q1

REPORT INFORMATION
  Report Type: Spontaneous
  Country: US (occurrence: US)
  Receive Date: 20170322
  Receipt Date: 20170322
  Transmission Date: 20170429
  Serious: Yes (Hospitalization)
  Sender: FDA-Public Use
  Company Number: None

PATIENT
  Age: 75 Year
  Sex: Male
  Weight: 95.4 kg

DRUGS (3)
  1. LENALIDOMIDE (CC-5013) [Suspect]
     Active Substance: LENALIDOMIDE
     Dates: end: 20170320
  2. DEXAMETHASONE. [Suspect]
     Active Substance: DEXAMETHASONE
     Dates: end: 20170320
  3. VELCADE [Suspect]
     Active Substance: BORTEZOMIB
     Dates: end: 20170320

REACTIONS (4)
  - Chest pain [None]
  - Hyperhidrosis [None]
  - Troponin increased [None]
  - Pain in extremity [None]

NARRATIVE: CASE EVENT DATE: 20170320
